FAERS Safety Report 5797815-4 (Version None)
Quarter: 2008Q3

REPORT INFORMATION
  Report Type: 
  Country: None (occurrence: None)
  Receive Date: 20080702
  Receipt Date: 20080626
  Transmission Date: 20090109
  Serious: Yes (Hospitalization, Other)
  Sender: FDA-Public Use
  Company Number: US-JNJFOC-20080402686

PATIENT
  Sex: Female
  Weight: 63.05 kg

DRUGS (5)
  1. REMICADE [Suspect]
     Route: 042
  2. REMICADE [Suspect]
     Indication: RHEUMATOID ARTHRITIS
     Route: 042
  3. BENADRYL [Concomitant]
     Indication: PREMEDICATION
  4. DECADRON [Concomitant]
     Indication: PREMEDICATION
  5. METHOTREXATE [Concomitant]

REACTIONS (4)
  - BACK PAIN [None]
  - HODGKIN'S DISEASE [None]
  - INFUSION RELATED REACTION [None]
  - RENAL PAIN [None]
